FAERS Safety Report 8358387 (Version 2)
Quarter: 2013Q1

REPORT INFORMATION
  Report Type: Spontaneous
  Country: FR (occurrence: FR)
  Receive Date: 20120127
  Receipt Date: 20130219
  Transmission Date: 20140127
  Serious: Yes (Hospitalization)
  Sender: FDA-Public Use
  Company Number: PHHY2012FR004713

PATIENT
  Age: 76 Year
  Sex: Male

DRUGS (9)
  1. AMOXICILLIN+CLAVULANATE [Suspect]
     Dosage: 1 G, TID
     Route: 042
     Dates: start: 20111209, end: 20111216
  2. SINTROM [Interacting]
     Dosage: (UNKNOWN DOSE)
  3. SINTROM [Interacting]
     Dosage: 4 MG, QD
     Route: 048
     Dates: start: 20111202, end: 20111212
  4. CIPROFLOXACIN [Interacting]
     Dosage: 500 MG, BID
     Route: 048
     Dates: start: 20111209, end: 20111216
  5. HEPARIN [Interacting]
     Dosage: 22 KIU, UNK
     Dates: start: 20111208
  6. HEPARIN [Interacting]
     Dosage: 20000 IU, UNK
  7. HEPARIN [Interacting]
     Dosage: 15000 IU, UNK
     Dates: end: 20111215
  8. PLAVIX [Concomitant]
  9. KARDEGIC [Concomitant]
     Dosage: UNK UKN, UNK

REACTIONS (4)
  - Post procedural haemorrhage [Recovered/Resolved]
  - International normalised ratio increased [Recovered/Resolved]
  - Anaemia [Recovered/Resolved]
  - Drug interaction [Unknown]
